FAERS Safety Report 10287261 (Version 2)
Quarter: 2014Q3

REPORT INFORMATION
  Report Type: Spontaneous
  Country: JP (occurrence: None)
  Receive Date: 20140707
  Receipt Date: 20140908
  Transmission Date: 20150326
  Serious: Yes (Hospitalization)
  Sender: FDA-Public Use
  Company Number: 2014-001904

PATIENT
  Age: 83 Year
  Sex: Male

DRUGS (3)
  1. PROLIA [Suspect]
     Active Substance: DENOSUMAB
     Indication: OSTEOPOROSIS
     Dosage: 17.5MG ONCE WEEKLY,ORAL
     Route: 058
     Dates: start: 20131219
  2. FLIVAS (NAFTOPIDIL) [Concomitant]
  3. BENET (RISEDRONATE SODIUM) TABLET [Suspect]
     Active Substance: RISEDRONIC ACID
     Indication: OSTEOPOROSIS
     Route: 048
     Dates: start: 201010, end: 201312

REACTIONS (5)
  - Gingivitis [None]
  - Gingival swelling [None]
  - Osteonecrosis of jaw [None]
  - Osteomyelitis [None]
  - Exposed bone in jaw [None]

NARRATIVE: CASE EVENT DATE: 201405
